FAERS Safety Report 5815031-4 (Version None)
Quarter: 2008Q3

REPORT INFORMATION
  Report Type: 
  Country: None (occurrence: None)
  Receive Date: 20080718
  Receipt Date: 20080709
  Transmission Date: 20090109
  Serious: Yes (Other)
  Sender: FDA-Public Use
  Company Number: B0528683A

PATIENT
  Age: 31 Year
  Sex: Male

DRUGS (3)
  1. DEROXAT [Suspect]
     Indication: AGITATION
     Route: 048
  2. VALPROATE SODIUM [Concomitant]
     Dosage: 500MG TWICE PER DAY
     Route: 048
     Dates: start: 20070514
  3. RISPERDAL [Concomitant]
     Indication: AGITATION
     Dosage: 1MG TWICE PER DAY
     Route: 048
     Dates: start: 20080326

REACTIONS (1)
  - ATRIAL FIBRILLATION [None]
